FAERS Safety Report 15215759 (Version 1)
Quarter: 2018Q3

REPORT INFORMATION
  Report Type: Spontaneous
  Country: US (occurrence: US)
  Receive Date: 20180730
  Receipt Date: 20180730
  Transmission Date: 20181010
  Serious: No
  Sender: FDA-Public Use
  Company Number: US-ENDO PHARMACEUTICALS INC-2017-005548

PATIENT
  Age: 36 Year
  Sex: Female
  Weight: 131.52 kg

DRUGS (1)
  1. SUMAVEL DOSEPRO [Suspect]
     Active Substance: SUMATRIPTAN SUCCINATE
     Indication: MIGRAINE
     Dosage: UNK, ONE, 0.5ML INJECTOR, AS NEEDED; CAN TAKE A SECOND, TWO HOURS AFTER THE FIRST IF NEEDED
     Route: 065
     Dates: start: 2013

REACTIONS (6)
  - Headache [Not Recovered/Not Resolved]
  - Hypoaesthesia [Not Recovered/Not Resolved]
  - Injection site haemorrhage [Unknown]
  - Confusional state [Not Recovered/Not Resolved]
  - Device malfunction [Recovered/Resolved]
  - Pain in extremity [Not Recovered/Not Resolved]

NARRATIVE: CASE EVENT DATE: 2016
